FAERS Safety Report 4924632-7 (Version None)
Quarter: 2006Q1

REPORT INFORMATION
  Report Type: 
  Country: None (occurrence: None)
  Receive Date: 20060222
  Receipt Date: 20060206
  Transmission Date: 20060701
  Serious: Yes (Hospitalization)
  Sender: FDA-Public Use
  Company Number: 2006-BP-01370RO

PATIENT
  Age: 29 Week
  Sex: Female
  Weight: 1.286 kg

DRUGS (2)
  1. AZATHIOPRINE [Suspect]
     Dosage: IU EXPORSURE TO 50 MG TID, IU
     Route: 015
  2. MESALAMINE [Suspect]
     Dosage: IU EXPOSURE TO 1 GM TID, IU
     Route: 015

REACTIONS (7)
  - ATRIAL SEPTAL DEFECT [None]
  - CAESAREAN SECTION [None]
  - CHORIOAMNIONITIS [None]
  - DRUG EXPOSURE DURING PREGNANCY [None]
  - PLACENTAL DISORDER [None]
  - STREPTOCOCCAL INFECTION [None]
  - VENTRICULAR SEPTAL DEFECT [None]
